FAERS Safety Report 7375379-1 (Version None)
Quarter: 2011Q1

REPORT INFORMATION
  Report Type: 
  Country: None (occurrence: None)
  Receive Date: 20110325
  Receipt Date: 20110323
  Transmission Date: 20110831
  Serious: Yes (Death, Hospitalization, Disabling, Other)
  Sender: FDA-Public Use
  Company Number: JP-ABBOTT-11P-087-0706212-00

PATIENT
  Sex: Female
  Weight: 40 kg

DRUGS (8)
  1. ETIZOLAM [Concomitant]
     Indication: INSOMNIA
     Dosage: 0.5 DAILY
     Dates: start: 20100105, end: 20101121
  2. AMLODIPINE BESYLATE [Concomitant]
     Indication: HYPERTENSION
     Route: 048
     Dates: start: 20100105, end: 20101121
  3. HUMIRA [Suspect]
     Indication: RHEUMATOID ARTHRITIS
     Route: 058
     Dates: start: 20100218, end: 20100830
  4. PREDNISOLONE [Concomitant]
     Indication: RHEUMATOID ARTHRITIS
     Dosage: 5MG DAILY
     Route: 048
     Dates: start: 20101121
  5. CELECOXIB [Concomitant]
     Indication: RHEUMATOID ARTHRITIS
     Dosage: 200MG DAILY
     Dates: start: 20100105, end: 20100121
  6. REBAMIPIDE [Concomitant]
     Indication: GASTRITIS PROPHYLAXIS
     Dosage: 200MG DAILY
     Dates: start: 20100105, end: 20101121
  7. BUCILLAMINE [Concomitant]
     Indication: RHEUMATOID ARTHRITIS
     Dates: start: 20100105, end: 20100203
  8. RALOXIFENE HYDROCHLORIDE [Concomitant]
     Indication: OSTEOPOROSIS
     Dosage: 60MG DAILY
     Dates: start: 20100506, end: 20101121

REACTIONS (5)
  - CHEST PAIN [None]
  - CEREBRAL HAEMORRHAGE [None]
  - GAIT DISTURBANCE [None]
  - RASH GENERALISED [None]
  - ACUTE MYOCARDIAL INFARCTION [None]
